FAERS Safety Report 6297841-5 (Version None)
Quarter: 2009Q3

REPORT INFORMATION
  Report Type: 
  Country: None (occurrence: None)
  Receive Date: 20090804
  Receipt Date: 20090804
  Transmission Date: 20100115
  Serious: Yes (Other)
  Sender: FDA-Public Use
  Company Number: None

PATIENT
  Age: 34 Year
  Sex: Female
  Weight: 63.9572 kg

DRUGS (1)
  1. BENZACLIN TOPICAL GEL [Suspect]
     Indication: ACNE
     Dosage: THIN LAYER, ONCE A DAY, TOP
     Route: 061
     Dates: start: 20090727, end: 20090730

REACTIONS (2)
  - ACNE [None]
  - DRUG HYPERSENSITIVITY [None]
